FAERS Safety Report 6875201-3 (Version None)
Quarter: 2010Q3

REPORT INFORMATION
  Report Type: 
  Country: None (occurrence: None)
  Receive Date: 20100727
  Receipt Date: 20100715
  Transmission Date: 20110219
  Serious: Yes (Hospitalization, Other)
  Sender: FDA-Public Use
  Company Number: DE-PFIZER INC-2010088119

PATIENT
  Age: 84 Year
  Sex: Female
  Weight: 72 kg

DRUGS (9)
  1. AMPICILLIN AND SULBACTAM [Suspect]
     Indication: URINARY TRACT INFECTION
     Dosage: 1.5 G, 2X/DAY
     Route: 042
     Dates: start: 20091129, end: 20091130
  2. LEVOFLOXACIN [Interacting]
     Indication: URINARY TRACT INFECTION
     Dosage: 250 MG, 1X/DAY
     Route: 048
     Dates: start: 20091130, end: 20091208
  3. CLARITHROMYCIN [Interacting]
     Indication: HELICOBACTER INFECTION
     Dosage: 500 MG, 2X/DAY
     Route: 048
     Dates: start: 20091221, end: 20091227
  4. PANTOPRAZOLE SODIUM [Interacting]
     Indication: PROPHYLAXIS AGAINST GASTROINTESTINAL ULCER
     Dosage: 40 MG, 1X/DAY
     Route: 048
  5. METRONIDAZOLE [Concomitant]
     Indication: HELICOBACTER INFECTION
     Dosage: 500 MG, 1X/DAY
     Route: 048
     Dates: start: 20091221, end: 20091227
  6. METOPROLOL [Concomitant]
     Indication: HYPERTENSION
     Dosage: 47.5 MG, 1X/DAY
     Route: 048
  7. RAMIPRIL [Concomitant]
     Indication: HYPERTENSION
     Dosage: 2.5 MG, 1X/DAY
  8. SIMVASTATIN [Concomitant]
     Indication: ISCHAEMIC HEART DISEASE PROPHYLAXIS
     Dosage: 20 MG, 1X/DAY
     Route: 048
  9. ACETYLSALICYLIC ACID [Concomitant]
     Indication: ISCHAEMIC HEART DISEASE PROPHYLAXIS
     Dosage: 100 MG, 1X/DAY
     Route: 048
     Dates: start: 20091101

REACTIONS (2)
  - CLOSTRIDIUM DIFFICILE COLITIS [None]
  - DRUG INTERACTION [None]
